FAERS Safety Report 19600532 (Version 1)
Quarter: 2021Q3

REPORT INFORMATION
  Report Type: Spontaneous
  Country: JP (occurrence: JP)
  Receive Date: 20210723
  Receipt Date: 20210723
  Transmission Date: 20211014
  Serious: Yes (Death, Hospitalization)
  Sender: FDA-Public Use
  Company Number: JP-STRIDES ARCOLAB LIMITED-2021SP025237

PATIENT
  Age: 64 Year
  Sex: Male

DRUGS (5)
  1. PREDNISOLONE. [Suspect]
     Active Substance: PREDNISOLONE
     Indication: CHOLANGITIS SCLEROSING
     Dosage: 60 MILLIGRAM PER DAY
     Route: 065
  2. PREDNISOLONE. [Suspect]
     Active Substance: PREDNISOLONE
     Dosage: 50 MILLIGRAM PER DAY
     Route: 065
  3. TACROLIMUS. [Suspect]
     Active Substance: TACROLIMUS
     Dosage: 4 MILLIGRAM PER DAY
     Route: 065
  4. MYCOPHENOLATE MOFETIL. [Suspect]
     Active Substance: MYCOPHENOLATE MOFETIL
     Indication: CHOLANGITIS SCLEROSING
     Dosage: 2000 MILLIGRAM PER DAY
     Route: 065
  5. TACROLIMUS. [Suspect]
     Active Substance: TACROLIMUS
     Indication: CHOLANGITIS SCLEROSING
     Dosage: 2 MILLIGRAM PER DAY
     Route: 065

REACTIONS (11)
  - Condition aggravated [Fatal]
  - Hepatic necrosis [Unknown]
  - Off label use [Unknown]
  - Bacterial infection [Unknown]
  - Cholangitis sclerosing [Fatal]
  - Drug ineffective [Fatal]
  - Biliary obstruction [Unknown]
  - Hepatic failure [Fatal]
  - Hepatitis acute [Fatal]
  - Fungal infection [Unknown]
  - Cytomegalovirus infection [Unknown]
